FAERS Safety Report 9025081 (Version 1)
Quarter: 2013Q1

REPORT INFORMATION
  Report Type: Spontaneous
  Country: IT (occurrence: IT)
  Receive Date: 20130121
  Receipt Date: 20130121
  Transmission Date: 20140127
  Serious: Yes (Hospitalization)
  Sender: FDA-Public Use
  Company Number: IT-SANOFI-AVENTIS-2013SA002856

PATIENT
  Age: 62 Year
  Sex: Male
  Weight: 80 kg

DRUGS (1)
  1. CLEXANE [Suspect]
     Indication: VENOUS THROMBOSIS LIMB
     Route: 058
     Dates: start: 20121020, end: 20121217

REACTIONS (6)
  - Drug reaction with eosinophilia and systemic symptoms [Recovering/Resolving]
  - Dermatitis exfoliative [Recovering/Resolving]
  - Eosinophilia [Recovering/Resolving]
  - Liver disorder [Recovering/Resolving]
  - Lymphadenopathy [Recovering/Resolving]
  - Type 2 diabetes mellitus [Recovering/Resolving]
